FAERS Safety Report 9474925 (Version 1)
Quarter: 2013Q3

REPORT INFORMATION
  Report Type: Spontaneous
  Country: US (occurrence: None)
  Receive Date: 20130822
  Receipt Date: 20130822
  Transmission Date: 20140515
  Serious: Yes (Life-Threatening, Hospitalization, Disabling)
  Sender: FDA-Public Use
  Company Number: None

PATIENT
  Age: 41 Year
  Sex: Female
  Weight: 49.44 kg

DRUGS (1)
  1. MICROGESTIN FE 1/20 [Suspect]
     Indication: DYSMENORRHOEA
     Dosage: 1TAB EVERYDAY SINCE DECEMBER 2?
     Route: 048
     Dates: start: 20121203, end: 20130814

REACTIONS (5)
  - Mood swings [None]
  - Suicidal ideation [None]
  - Hypoaesthesia [None]
  - Fatigue [None]
  - Asthenia [None]
